FAERS Safety Report 15852408 (Version 1)
Quarter: 2019Q1

REPORT INFORMATION
  Report Type: Spontaneous
  Country: US (occurrence: US)
  Receive Date: 20190122
  Receipt Date: 20190122
  Transmission Date: 20190417
  Serious: Yes (Other)
  Sender: FDA-Public Use
  Company Number: US-ELI_LILLY_AND_COMPANY-US201901005360

PATIENT
  Age: 58 Year
  Sex: Female

DRUGS (4)
  1. JARDIANCE [Concomitant]
     Active Substance: EMPAGLIFLOZIN
     Indication: TYPE 2 DIABETES MELLITUS
     Dosage: 12.5 MG, DAILY
     Route: 065
  2. TRULICITY [Suspect]
     Active Substance: DULAGLUTIDE
     Indication: TYPE 2 DIABETES MELLITUS
     Dosage: 0.75 MG, UNKNOWN
     Route: 065
  3. LANTUS [Concomitant]
     Active Substance: INSULIN GLARGINE
     Indication: TYPE 2 DIABETES MELLITUS
     Dosage: 45 U, DAILY
     Route: 065
  4. TRULICITY [Suspect]
     Active Substance: DULAGLUTIDE
     Dosage: 0.75 MG, UNKNOWN
     Route: 065

REACTIONS (5)
  - Blood glucose increased [Recovered/Resolved]
  - Blood glucose decreased [Recovered/Resolved]
  - Product dose omission [Unknown]
  - Product storage error [Unknown]
  - Loss of consciousness [Not Recovered/Not Resolved]

NARRATIVE: CASE EVENT DATE: 20190110
